FAERS Safety Report 11404129 (Version 1)
Quarter: 2015Q3

REPORT INFORMATION
  Report Type: Spontaneous
  Country: US (occurrence: US)
  Receive Date: 20150821
  Receipt Date: 20150821
  Transmission Date: 20151125
  Serious: No
  Sender: FDA-Public Use
  Company Number: US-BAYER-2015-404784

PATIENT
  Sex: Female

DRUGS (2)
  1. BETASERON [Suspect]
     Active Substance: INTERFERON BETA-1B
     Indication: SECONDARY PROGRESSIVE MULTIPLE SCLEROSIS
     Dosage: 0.25 MG, QOD
     Route: 058
  2. BETASERON [Suspect]
     Active Substance: INTERFERON BETA-1B
     Indication: SECONDARY PROGRESSIVE MULTIPLE SCLEROSIS
     Dosage: 25 MG, ONCE A WEEK
     Route: 058

REACTIONS (2)
  - Influenza like illness [None]
  - Off label use [None]
